FAERS Safety Report 7631454-5 (Version None)
Quarter: 2011Q3

REPORT INFORMATION
  Report Type: 
  Country: None (occurrence: None)
  Receive Date: 20110725
  Receipt Date: 20110712
  Transmission Date: 20111222
  Serious: Yes (Other)
  Sender: FDA-Public Use
  Company Number: CA-ELI_LILLY_AND_COMPANY-CA201107003010

PATIENT
  Sex: Male

DRUGS (8)
  1. ZYPREXA [Suspect]
     Indication: SCHIZOPHRENIA
     Dosage: 15 MG, QD
     Dates: start: 20000303
  2. ZYPREXA [Suspect]
     Dosage: 10 MG, EACH EVENING
  3. CLONAZEPAM [Concomitant]
  4. VALPROATE SODIUM [Concomitant]
  5. RISPERDAL [Concomitant]
  6. ZYPREXA ZYDIS [Suspect]
     Indication: SCHIZOPHRENIA
     Dosage: UNK
  7. CHLORAL HYDRATE [Concomitant]
  8. LITHIUM CARBONATE [Concomitant]

REACTIONS (11)
  - WEIGHT INCREASED [None]
  - HYPERTENSION [None]
  - HAEMOGLOBIN DECREASED [None]
  - PLASMACYTOMA [None]
  - ANAEMIA VITAMIN B12 DEFICIENCY [None]
  - LEUKOPENIA [None]
  - TYPE 2 DIABETES MELLITUS [None]
  - NEUTROPENIA [None]
  - DYSLIPIDAEMIA [None]
  - PLATELET COUNT DECREASED [None]
  - HAEMATOCRIT DECREASED [None]
